FAERS Safety Report 4981649-4 (Version None)
Quarter: 2006Q2

REPORT INFORMATION
  Report Type: 
  Country: None (occurrence: None)
  Receive Date: 20060425
  Receipt Date: 20060421
  Transmission Date: 20061013
  Serious: Yes (Other)
  Sender: FDA-Public Use
  Company Number: JP-AVENTIS-200611317JP

PATIENT
  Age: 31 Year
  Sex: Female

DRUGS (3)
  1. ALLEGRA [Suspect]
     Route: 048
  2. ANTIBIOTICS [Concomitant]
  3. ANTIHISTAMINES [Concomitant]

REACTIONS (3)
  - ALANINE AMINOTRANSFERASE INCREASED [None]
  - ASPARTATE AMINOTRANSFERASE INCREASED [None]
  - HEPATIC FUNCTION ABNORMAL [None]
